FAERS Safety Report 18999247 (Version 2)
Quarter: 2021Q2

REPORT INFORMATION
  Report Type: Spontaneous
  Country: US (occurrence: US)
  Receive Date: 20210312
  Receipt Date: 20210415
  Transmission Date: 20210717
  Serious: No
  Sender: FDA-Public Use
  Company Number: US-SA-2021SA082614

PATIENT
  Sex: Female

DRUGS (5)
  1. TRIAMCINOLONE ACETONIDE. [Concomitant]
     Active Substance: TRIAMCINOLONE ACETONIDE
  2. VITAMINS NOS [Concomitant]
     Active Substance: VITAMINS
  3. METAMUCIL [Concomitant]
     Active Substance: PLANTAGO SEED
  4. ZINC. [Concomitant]
     Active Substance: ZINC
  5. DUPIXENT [Suspect]
     Active Substance: DUPILUMAB
     Indication: DERMATITIS ATOPIC
     Dosage: 300 MG, QOW
     Route: 058

REACTIONS (6)
  - Pruritus [Unknown]
  - Injection site pain [Unknown]
  - Menopausal symptoms [Unknown]
  - Feeling abnormal [Unknown]
  - Anxiety [Unknown]
  - Weight increased [Unknown]
